FAERS Safety Report 7316330-X (Version None)
Quarter: 2011Q1

REPORT INFORMATION
  Report Type: 
  Country: None (occurrence: None)
  Receive Date: 20110225
  Receipt Date: 20110217
  Transmission Date: 20110831
  Serious: Yes (Other)
  Sender: FDA-Public Use
  Company Number: US-US-EMD SERONO, INC.-7013653

PATIENT
  Sex: Female

DRUGS (2)
  1. REBIF [Suspect]
     Indication: MULTIPLE SCLEROSIS
     Route: 058
     Dates: start: 20100614
  2. TYSABRI [Suspect]

REACTIONS (4)
  - INJECTION SITE REACTION [None]
  - CERVICAL DYSPLASIA [None]
  - HUMAN PAPILLOMA VIRUS TEST POSITIVE [None]
  - MUSCLE SPASMS [None]
